FAERS Safety Report 20884334 (Version 1)
Quarter: 2022Q2

REPORT INFORMATION
  Report Type: Spontaneous
  Country: CA (occurrence: CA)
  Receive Date: 20220527
  Receipt Date: 20220527
  Transmission Date: 20220721
  Serious: Yes (Other)
  Sender: FDA-Public Use
  Company Number: CA-PFIZER INC-202200744794

PATIENT
  Age: 59 Year
  Sex: Male
  Weight: 55.34 kg

DRUGS (2)
  1. GABAPENTIN [Suspect]
     Active Substance: GABAPENTIN
     Indication: Vitamin B12 deficiency
     Dosage: 600 MG,4X/DAY
     Dates: start: 20200228
  2. GABAPENTIN [Suspect]
     Active Substance: GABAPENTIN
     Dosage: 1600 MG, 1X/DAY

REACTIONS (4)
  - Neuropathy peripheral [Unknown]
  - Off label use [Unknown]
  - Drug ineffective for unapproved indication [Unknown]
  - Pain [Not Recovered/Not Resolved]

NARRATIVE: CASE EVENT DATE: 20200228
